FAERS Safety Report 11869952 (Version 3)
Quarter: 2016Q1

REPORT INFORMATION
  Report Type: Spontaneous
  Country: JP (occurrence: JP)
  Receive Date: 20151228
  Receipt Date: 20160111
  Transmission Date: 20160526
  Serious: Yes (Other)
  Sender: FDA-Public Use
  Company Number: JP-BEH-2015057037

PATIENT
  Age: 21 Year
  Sex: Male

DRUGS (1)
  1. INTRAVENOUS GAMMA-GLOBULIN [Suspect]
     Active Substance: HUMAN IMMUNOGLOBULIN G
     Indication: KAWASAKI^S DISEASE

REACTIONS (4)
  - Peripheral artery aneurysm [Recovered/Resolved]
  - Coronary artery aneurysm [Recovered/Resolved]
  - Drug ineffective [Unknown]
  - Aortic aneurysm [Recovered/Resolved]
